FAERS Safety Report 5927295-7 (Version None)
Quarter: 2008Q4

REPORT INFORMATION
  Report Type: 
  Country: None (occurrence: None)
  Receive Date: 20081017
  Receipt Date: 20081007
  Transmission Date: 20090506
  Serious: Yes (Other)
  Sender: FDA-Public Use
  Company Number: 2008AP000305

PATIENT
  Age: 29 Year
  Sex: Female

DRUGS (13)
  1. PAROXETINE HCL [Suspect]
     Dosage: QD : PO;QD : ORAL_LIQ;PO;QD : PO;QD
     Route: 048
     Dates: start: 20010109
  2. PAROXETINE HCL [Suspect]
     Dosage: QD : PO;QD : ORAL_LIQ;PO;QD : PO;QD
     Route: 048
     Dates: start: 20030206
  3. PAROXETINE HCL [Suspect]
     Dosage: QD : PO;QD : ORAL_LIQ;PO;QD : PO;QD
     Route: 048
     Dates: start: 20030530
  4. PAROXETINE HCL [Suspect]
     Dosage: QD : PO;QD : ORAL_LIQ;PO;QD : PO;QD
     Route: 048
     Dates: start: 20050304
  5. CITALOPRAM HYDROBROMIDE [Concomitant]
  6. DIAZEPAM [Concomitant]
  7. HYROXYZINE (HYDROXYZINE) [Concomitant]
  8. MIRTAZAPINE [Concomitant]
  9. FLUOXETINE HCL [Concomitant]
  10. BUSPIRONE HCL [Concomitant]
  11. PROCHLORPERAZINE MALEATE [Concomitant]
  12. PROCHLORPERAZINE MALEATE (PROCHLORPERAZINE MALEATE) [Concomitant]
  13. PROCHLORPERAZINE MESILATE (PROCHLORPERAZINE MESILATE) [Concomitant]

REACTIONS (8)
  - ABDOMINAL PAIN UPPER [None]
  - DRUG WITHDRAWAL SYNDROME [None]
  - EATING DISORDER [None]
  - INFLUENZA LIKE ILLNESS [None]
  - LOSS OF CONSCIOUSNESS [None]
  - PANIC REACTION [None]
  - PARTNER STRESS [None]
  - SOCIAL AVOIDANT BEHAVIOUR [None]
